FAERS Safety Report 5238768-7 (Version None)
Quarter: 2007Q1

REPORT INFORMATION
  Report Type: 
  Country: None (occurrence: None)
  Receive Date: 20061208
  Receipt Date: 20050310
  Transmission Date: 20070707
  Serious: Yes (Other)
  Sender: FDA-Public Use
  Company Number: 2005UW03845

PATIENT
  Age: 70 Year
  Sex: Female

DRUGS (3)
  1. CRESTOR [Suspect]
     Indication: BLOOD CHOLESTEROL INCREASED
     Dosage: 10 MG PO
     Route: 048
  2. ACTOS [Concomitant]
  3. AMARYL [Concomitant]

REACTIONS (3)
  - NASOPHARYNGITIS [None]
  - PAIN IN EXTREMITY [None]
  - SINUSITIS [None]
